FAERS Safety Report 22130606 (Version 1)
Quarter: 2023Q1

REPORT INFORMATION
  Report Type: Spontaneous
  Country: US (occurrence: US)
  Receive Date: 20230323
  Receipt Date: 20230323
  Transmission Date: 20230418
  Serious: No
  Sender: FDA-Public Use
  Company Number: US-APIL-2308685US

PATIENT
  Sex: Female

DRUGS (17)
  1. LINZESS [Suspect]
     Active Substance: LINACLOTIDE
     Indication: Product used for unknown indication
     Dosage: UNK
  2. AUBAGIO [Suspect]
     Active Substance: TERIFLUNOMIDE
     Indication: Multiple sclerosis
     Dosage: 14 MG, QD
     Route: 048
     Dates: start: 20160104
  3. VITAMINS [Concomitant]
     Active Substance: VITAMINS
  4. CALCIUM\VITAMIN D [Concomitant]
     Active Substance: CALCIUM\VITAMIN D
  5. D-MANNOSE [Concomitant]
  6. VITAMIN D3 [Concomitant]
     Active Substance: CHOLECALCIFEROL
  7. VALSARTAN [Concomitant]
     Active Substance: VALSARTAN
  8. NORTRIPTYLINE [Concomitant]
     Active Substance: NORTRIPTYLINE
  9. PROPRANOLOL [Concomitant]
     Active Substance: PROPRANOLOL HYDROCHLORIDE
  10. ALENDRONATE [Concomitant]
     Active Substance: ALENDRONATE SODIUM
  11. LOVASTATIN [Concomitant]
     Active Substance: LOVASTATIN
  12. TYLENOL [Concomitant]
     Active Substance: ACETAMINOPHEN
  13. MIRALAX [Concomitant]
     Active Substance: POLYETHYLENE GLYCOL 3350
  14. METAMUCIL [Concomitant]
     Active Substance: PLANTAGO SEED
  15. HYDROCHLOROTHIAZIDE [Concomitant]
     Active Substance: HYDROCHLOROTHIAZIDE
  16. KCL [Concomitant]
     Active Substance: POTASSIUM CHLORIDE
  17. COENZYME Q10 [Concomitant]
     Active Substance: DIETARY SUPPLEMENT\UBIDECARENONE

REACTIONS (6)
  - Memory impairment [Recovering/Resolving]
  - Condition aggravated [Recovering/Resolving]
  - Confusional state [Recovering/Resolving]
  - Blood potassium decreased [Recovering/Resolving]
  - Bladder disorder [Recovering/Resolving]
  - Diarrhoea [Recovering/Resolving]

NARRATIVE: CASE EVENT DATE: 20220101
